FAERS Safety Report 10060459 (Version 2)
Quarter: 2014Q2

REPORT INFORMATION
  Report Type: Report from Study
  Country: US (occurrence: US)
  Receive Date: 20140404
  Receipt Date: 20140422
  Transmission Date: 20141212
  Serious: Yes (Hospitalization)
  Sender: FDA-Public Use
  Company Number: US-JNJFOC-20140319120

PATIENT
  Age: 16 Year
  Sex: Male
  Weight: 80.9 kg

DRUGS (32)
  1. REMICADE [Suspect]
     Indication: INFLAMMATORY BOWEL DISEASE
     Route: 042
  2. REMICADE [Suspect]
     Indication: INFLAMMATORY BOWEL DISEASE
     Route: 042
     Dates: start: 20050807
  3. BENADRYL [Concomitant]
     Route: 065
  4. GOLYTELY NOS [Concomitant]
     Route: 065
  5. KLONOPIN [Concomitant]
     Route: 065
  6. MIRALAX [Concomitant]
     Route: 065
  7. NEURONTIN [Concomitant]
     Route: 065
  8. NEXIUM [Concomitant]
     Route: 065
  9. 5-ASA [Concomitant]
     Route: 048
  10. PROVIGIL [Concomitant]
     Route: 065
  11. PULMICORT [Concomitant]
     Route: 065
  12. VITAMIN D [Concomitant]
     Route: 065
  13. CLONIDINE [Concomitant]
     Route: 065
  14. ZOFRAN [Concomitant]
     Route: 065
  15. MELATONIN [Concomitant]
     Route: 065
  16. MIDODRINE [Concomitant]
     Route: 065
  17. CREATINE [Concomitant]
     Route: 065
  18. ATENOLOL [Concomitant]
     Route: 065
  19. AZELASTINE [Concomitant]
     Route: 065
  20. FLUTICASONE [Concomitant]
     Route: 065
  21. IVIG [Concomitant]
     Route: 042
  22. LEVALBUTEROL [Concomitant]
     Route: 065
  23. MULTIVITAMINS [Concomitant]
     Route: 065
  24. NALTREXONE [Concomitant]
     Route: 065
  25. COENZYME Q [Concomitant]
     Route: 065
  26. FOLIC ACID [Concomitant]
     Route: 065
  27. LIPOIC ACID [Concomitant]
     Route: 065
  28. MAGNESIUM CITRATE [Concomitant]
     Route: 065
  29. RIBOFLAVIN [Concomitant]
     Route: 065
  30. SELENIUM [Concomitant]
     Route: 065
  31. VITAMIN C [Concomitant]
     Route: 065
  32. VITAMINE E [Concomitant]
     Route: 065

REACTIONS (1)
  - Device related infection [Recovered/Resolved]
